FAERS Safety Report 7892429-4 (Version None)
Quarter: 2011Q4

REPORT INFORMATION
  Report Type: 
  Country: None (occurrence: None)
  Receive Date: 20111102
  Receipt Date: 20111021
  Transmission Date: 20120403
  Serious: Yes (Hospitalization, Other)
  Sender: FDA-Public Use
  Company Number: CIP11000505

PATIENT
  Age: 78 Year
  Sex: Female

DRUGS (31)
  1. MELOXICAM [Concomitant]
  2. POTASSIUM CHLORIDE [Concomitant]
  3. DETROL LA [Concomitant]
  4. ACTONEL [Suspect]
     Dosage: 35 MG ONCE WEEKLY, ORAL
     Route: 048
     Dates: start: 20100304
  5. ACTONEL [Suspect]
     Dosage: 35 MG ONCE WEEKLY, ORAL
     Route: 048
     Dates: start: 20070301, end: 20090101
  6. LEVOXYL [Concomitant]
  7. CALCIUM +VIT D (CALCIUM COLECALCIFEROL) [Concomitant]
  8. TYLENOL /00020001/ (PARACETAMOL) [Concomitant]
  9. TRAZODONE HCL [Concomitant]
  10. FOSAMAX [Suspect]
     Dosage: 70 MG ONCE WEEKLY, ORAL
     Route: 048
     Dates: start: 20011011, end: 20050101
  11. FOSAMAX [Suspect]
     Dosage: 70 MG ONCE WEEKLY, ORAL
     Route: 048
     Dates: start: 20090319, end: 20100101
  12. SULFAMETHOXAZOLE AND TRIMETHOPRIM (SULFAMETHOXAZOLE, TRIMETHOPRIM) [Concomitant]
  13. CADUET [Concomitant]
  14. VITAMINS NOS (VITAMINS NOS) [Concomitant]
  15. BISOPROLOL FUMARATE [Concomitant]
  16. MIRTAZAPINE [Concomitant]
  17. ACTONEL WITH CALCIUM (COPACKAGED) [Suspect]
     Dosage: 1 TABLET DOSAGE REGIMEN UNKNOWN, ORAL
     Route: 048
     Dates: start: 20070315, end: 20081015
  18. FORTEO [Concomitant]
  19. FEXOFENADINE HCL [Concomitant]
  20. NIACIN [Concomitant]
  21. PRILOSEC [Concomitant]
  22. ZANTAC [Concomitant]
  23. ZYRTEC [Concomitant]
  24. ALREX /01388302/ (LOTEPREDNOL ETABONATE) [Concomitant]
  25. NYSTATIN [Concomitant]
  26. FISH OIL (FISH OIL) [Concomitant]
  27. ASPIRIN [Concomitant]
  28. DOXAZOSIN MESYLATE (DOXAZOSIN MESILATE) [Concomitant]
  29. TRIAMTERENE AND HYDROCHLOROTHIAZIDE (HYDROCHLOROTHIAZIDE, TRIAMTERENE) [Concomitant]
  30. SIMVASTATIN [Concomitant]
  31. PLENDIL [Concomitant]

REACTIONS (20)
  - FALL [None]
  - INFECTION [None]
  - TENDERNESS [None]
  - BONE FORMATION INCREASED [None]
  - CYSTOCELE [None]
  - FEMUR FRACTURE [None]
  - GAIT DISTURBANCE [None]
  - MUSCLE ATROPHY [None]
  - NO THERAPEUTIC RESPONSE [None]
  - STRESS FRACTURE [None]
  - ANAEMIA POSTOPERATIVE [None]
  - IMPAIRED HEALING [None]
  - NEOPLASM [None]
  - ARTHRALGIA [None]
  - PATHOLOGICAL FRACTURE [None]
  - BURSITIS [None]
  - GROIN PAIN [None]
  - FRACTURE DISPLACEMENT [None]
  - PAIN IN EXTREMITY [None]
  - PAIN [None]
